FAERS Safety Report 21020588 (Version 1)
Quarter: 2022Q2

REPORT INFORMATION
  Report Type: Report from Study
  Country: US (occurrence: None)
  Receive Date: 20220629
  Receipt Date: 20220629
  Transmission Date: 20220721
  Serious: Yes (Hospitalization, Other)
  Sender: FDA-Public Use
  Company Number: US-ROCHE-1524933

PATIENT
  Age: 55 Year
  Sex: Female
  Weight: 75 kg

DRUGS (18)
  1. PERTUZUMAB [Suspect]
     Active Substance: PERTUZUMAB
     Indication: Breast cancer
     Route: 042
     Dates: start: 20131217
  2. TRASTUZUMAB [Suspect]
     Active Substance: TRASTUZUMAB
     Indication: Breast cancer
     Route: 041
     Dates: start: 20131217
  3. ERIBULIN [Suspect]
     Active Substance: ERIBULIN
     Indication: Breast cancer
     Route: 042
     Dates: start: 20131217
  4. ATROVENT [Concomitant]
     Active Substance: IPRATROPIUM BROMIDE
     Dosage: 2 SPRAY BID
     Route: 045
  5. ALBUTEROL [Concomitant]
     Active Substance: ALBUTEROL
     Dosage: INHALER HFA 2 PUFF INH EVERY 6 H
  6. NASONEX [Concomitant]
     Active Substance: MOMETASONE FUROATE
     Dosage: NAS EVERY DAY
  7. COLACE [Concomitant]
     Active Substance: DOCUSATE SODIUM
     Route: 048
  8. COMPAZINE [Concomitant]
     Active Substance: PROCHLORPERAZINE MALEATE
     Dosage: EVERY 6H
     Route: 048
  9. ACIPHEX [Concomitant]
     Active Substance: RABEPRAZOLE SODIUM
     Route: 048
  10. OXYCONTIN [Concomitant]
     Active Substance: OXYCODONE HYDROCHLORIDE
     Route: 048
  11. OXYCODONE [Concomitant]
     Active Substance: OXYCODONE
     Dosage: EVERY 6H
     Route: 048
  12. BUPROPION HYDROCHLORIDE [Concomitant]
     Active Substance: BUPROPION HYDROCHLORIDE
     Route: 048
  13. BUSPAR [Concomitant]
     Active Substance: BUSPIRONE HYDROCHLORIDE
     Route: 048
  14. GABAPENTIN [Concomitant]
     Active Substance: GABAPENTIN
     Route: 048
  15. EFFEXOR XR [Concomitant]
     Active Substance: VENLAFAXINE HYDROCHLORIDE
     Route: 048
  16. PERIDEX MOUTHWASH [Concomitant]
  17. CLONAZEPAM [Concomitant]
     Active Substance: CLONAZEPAM
     Route: 048
  18. LIDOCAINE [Concomitant]
     Active Substance: LIDOCAINE
     Dosage: 1 APPLICATION TOP X1

REACTIONS (2)
  - Rib fracture [Unknown]
  - Musculoskeletal chest pain [Recovered/Resolved]

NARRATIVE: CASE EVENT DATE: 20140105
